FAERS Safety Report 4557008-5 (Version None)
Quarter: 2005Q1

REPORT INFORMATION
  Report Type: 
  Country: None (occurrence: None)
  Receive Date: 20050103
  Receipt Date: 20040908
  Transmission Date: 20050727
  Serious: Yes (Other)
  Sender: FDA-Public Use
  Company Number: 2004UW18913

PATIENT
  Age: 71 Year
  Sex: Female
  Weight: 58.9676 kg

DRUGS (5)
  1. CRESTOR [Suspect]
     Indication: HYPERCHOLESTEROLAEMIA
     Dosage: 10 MG QD PO
     Route: 048
     Dates: start: 20040801
  2. ZETIA [Concomitant]
  3. TOPROL-XL [Concomitant]
  4. ECOTRIN [Concomitant]
  5. TAMOXIFEN CITRATE [Concomitant]

REACTIONS (3)
  - DIFFICULTY IN WALKING [None]
  - MUSCULAR WEAKNESS [None]
  - MYALGIA [None]
